FAERS Safety Report 21867999 (Version 1)
Quarter: 2023Q1

REPORT INFORMATION
  Report Type: Spontaneous
  Country: GB (occurrence: GB)
  Receive Date: 20230116
  Receipt Date: 20230116
  Transmission Date: 20230418
  Serious: Yes (Hospitalization, Disabling, Other)
  Sender: FDA-Public Use
  Company Number: GB-MHRA-MED-202301041315367380-VDHMW

PATIENT
  Sex: Female

DRUGS (6)
  1. ACULAR [Interacting]
     Active Substance: KETOROLAC TROMETHAMINE
     Indication: Macular oedema
     Dosage: 1 GTT, TID
     Dates: start: 20220621
  2. TOBRADEX [Interacting]
     Active Substance: DEXAMETHASONE\TOBRAMYCIN
     Indication: Infection prophylaxis
     Dosage: UNK
     Dates: start: 20220621
  3. AMITRIPTYLINE [Concomitant]
     Active Substance: AMITRIPTYLINE
  4. AMLODIPINE [Concomitant]
     Active Substance: AMLODIPINE BESYLATE
  5. OMEPRAZOLE [Concomitant]
     Active Substance: OMEPRAZOLE
  6. PREGABALIN [Concomitant]
     Active Substance: PREGABALIN

REACTIONS (4)
  - Ulcerative keratitis [Not Recovered/Not Resolved]
  - Foreign body sensation in eyes [Unknown]
  - Photophobia [Unknown]
  - Drug interaction [Unknown]

NARRATIVE: CASE EVENT DATE: 20220628
